FAERS Safety Report 22924671 (Version 3)
Quarter: 2024Q3

REPORT INFORMATION
  Report Type: Spontaneous
  Country: US (occurrence: US)
  Receive Date: 20230908
  Receipt Date: 20240723
  Transmission Date: 20241016
  Serious: No
  Sender: BRISTOL MYERS SQUIBB
  Company Number: US-BRISTOL-MYERS SQUIBB COMPANY-2023-127531

PATIENT
  Age: 87 Year
  Sex: Female

DRUGS (2)
  1. ORENCIA [Suspect]
     Active Substance: ABATACEPT
     Indication: Rheumatoid arthritis
     Route: 058
     Dates: start: 201603
  2. ORENCIA [Suspect]
     Active Substance: ABATACEPT
     Route: 058
     Dates: start: 201603

REACTIONS (5)
  - Joint swelling [Unknown]
  - Arthralgia [Unknown]
  - Stress [Unknown]
  - Rheumatoid arthritis [Recovering/Resolving]
  - Drug effect less than expected [Unknown]
